FAERS Safety Report 8896294 (Version 1)
Quarter: 2012Q4

REPORT INFORMATION
  Report Type: Spontaneous
  Country: FR (occurrence: None)
  Receive Date: 20121031
  Receipt Date: 20121031
  Transmission Date: 20130627
  Serious: Yes (Disabling, Other)
  Sender: FDA-Public Use
  Company Number: KAD201210-000469

PATIENT
  Age: 51 Year
  Sex: Female

DRUGS (2)
  1. RIBAVIRIN [Suspect]
     Indication: CHRONIC HEPATITIS C
  2. PEGYLATED INTERFERON ALFA-2B [Suspect]
     Indication: CHRONIC HEPATITIS C

REACTIONS (7)
  - Vogt-Koyanagi-Harada syndrome [None]
  - Blindness [None]
  - Uveitis [None]
  - Papilloedema [None]
  - Retinal oedema [None]
  - Detachment of retinal pigment epithelium [None]
  - Drug dependence [None]
